FAERS Safety Report 8248040-9 (Version None)
Quarter: 2012Q1

REPORT INFORMATION
  Report Type: 
  Country: None (occurrence: None)
  Receive Date: 20120330
  Receipt Date: 20120323
  Transmission Date: 20120608
  Serious: Yes (Other)
  Sender: FDA-Public Use
  Company Number: AU-JNJFOC-20120313287

PATIENT
  Age: 49 Year
  Sex: Male
  Weight: 73 kg

DRUGS (7)
  1. INTELENCE [Suspect]
     Indication: HIV INFECTION
     Route: 048
     Dates: start: 20080925, end: 20081014
  2. ISENTRESS [Interacting]
     Indication: PRODUCT USED FOR UNKNOWN INDICATION
     Route: 048
  3. IRBESARTAN [Interacting]
     Indication: PRODUCT USED FOR UNKNOWN INDICATION
     Route: 065
  4. LERCANIDIPINE HYDROCHLORIDE [Interacting]
     Indication: PRODUCT USED FOR UNKNOWN INDICATION
     Route: 065
  5. RITONAVIR [Interacting]
     Indication: HIV INFECTION
     Route: 048
  6. INDOMETHACIN [Interacting]
     Indication: PRODUCT USED FOR UNKNOWN INDICATION
     Route: 065
  7. PREZISTA [Interacting]
     Indication: HIV INFECTION
     Route: 048
     Dates: start: 20080925, end: 20081014

REACTIONS (4)
  - NEPHROPATHY TOXIC [None]
  - RENAL IMPAIRMENT [None]
  - NEPHROPATHY [None]
  - DRUG INTERACTION [None]
